FAERS Safety Report 5734647-7 (Version None)
Quarter: 2008Q2

REPORT INFORMATION
  Report Type: 
  Country: None (occurrence: None)
  Receive Date: 20080512
  Receipt Date: 20080501
  Transmission Date: 20081010
  Serious: Yes (Other)
  Sender: FDA-Public Use
  Company Number: PHHY2008CA07122

PATIENT
  Age: 35 Year
  Sex: Female

DRUGS (3)
  1. FAMVIR [Suspect]
     Indication: ORAL HERPES
     Dosage: 125 MG, BID FOR 5 DAYS
     Route: 048
     Dates: start: 19970101
  2. FAMVIR [Suspect]
     Dosage: 1000 MG, BID, 1ST DAY ONCE ONLY
     Route: 048
  3. FAMVIR [Suspect]
     Dosage: 125 MG, BID, FOR 1ST DAY
     Route: 048
     Dates: start: 19970101

REACTIONS (4)
  - ALANINE AMINOTRANSFERASE INCREASED [None]
  - ASPARTATE AMINOTRANSFERASE INCREASED [None]
  - LIVER FUNCTION TEST ABNORMAL [None]
  - PNEUMONIA [None]
